FAERS Safety Report 7605253-4 (Version None)
Quarter: 2011Q3

REPORT INFORMATION
  Report Type: 
  Country: None (occurrence: None)
  Receive Date: 20110713
  Receipt Date: 20110629
  Transmission Date: 20111222
  Serious: Yes (Other)
  Sender: FDA-Public Use
  Company Number: JP-RANBAXY-2011RR-45943

PATIENT
  Age: 33 Year
  Sex: Female

DRUGS (5)
  1. MELOXICAM [Suspect]
  2. ETODOLAC [Suspect]
  3. CELECOXIB [Suspect]
     Dosage: 50 MG, UNK
     Route: 048
  4. ASPIRIN [Suspect]
     Dosage: 15 MG, UNK
     Route: 048
  5. TIARAMIDE [Suspect]

REACTIONS (7)
  - ABDOMINAL PAIN UPPER [None]
  - URTICARIA [None]
  - SINUSITIS [None]
  - ASTHMA [None]
  - HYPERTROPHY [None]
  - ANOSMIA [None]
  - LOSS OF CONSCIOUSNESS [None]
